FAERS Safety Report 5451744-4 (Version None)
Quarter: 2007Q3

REPORT INFORMATION
  Report Type: 
  Country: None (occurrence: None)
  Receive Date: 20070913
  Receipt Date: 20070910
  Transmission Date: 20080115
  Serious: Yes (Hospitalization)
  Sender: FDA-Public Use
  Company Number: SE-GENENTECH-244691

PATIENT
  Sex: Female

DRUGS (2)
  1. RITUXIMAB [Suspect]
     Indication: B-CELL LYMPHOMA
     Dosage: UNK, UNKNOWN
     Route: 065
  2. CHEMOTHERAPY NOS [Concomitant]
     Indication: B-CELL LYMPHOMA

REACTIONS (3)
  - COMA [None]
  - ENCEPHALITIS [None]
  - HERPES ZOSTER [None]
